FAERS Safety Report 4928589-4 (Version None)
Quarter: 2006Q1

REPORT INFORMATION
  Report Type: 
  Country: None (occurrence: None)
  Receive Date: 20060223
  Receipt Date: 20060210
  Transmission Date: 20060701
  Serious: Yes (Death, Other)
  Sender: FDA-Public Use
  Company Number: 2005160876

PATIENT
  Age: 54 Year
  Sex: Male

DRUGS (9)
  1. DOXORUBICIN (DOXORUBICIN) [Suspect]
     Indication: MULTIPLE MYELOMA
  2. CYCLOPHOSPHAMIDE [Suspect]
     Indication: MULTIPLE MYELOMA
  3. VINCRISTINE [Suspect]
     Indication: MULTIPLE MYELOMA
  4. METHYLPREDNISOLONE SODIUM SUCCINATE [Suspect]
     Indication: MULTIPLE MYELOMA
  5. CISPLATIN [Suspect]
     Indication: MULTIPLE MYELOMA
  6. DEXAMETHASONE [Suspect]
     Indication: MULTIPLE MYELOMA
  7. MELPHALAN (MELPHALAN) [Suspect]
     Indication: MULTIPLE MYELOMA
  8. PREDNISONE TAB [Suspect]
     Indication: MULTIPLE MYELOMA
  9. THALOMID [Suspect]
     Indication: MULTIPLE MYELOMA

REACTIONS (4)
  - BACTERIAL SEPSIS [None]
  - CARDIAC ARREST [None]
  - LEUKAEMIA PLASMACYTIC [None]
  - PLASMACYTOMA [None]
